FAERS Safety Report 6249510-5 (Version None)
Quarter: 2009Q2

REPORT INFORMATION
  Report Type: 
  Country: None (occurrence: None)
  Receive Date: 20090629
  Receipt Date: 20090618
  Transmission Date: 20091009
  Serious: Yes (Death)
  Sender: FDA-Public Use
  Company Number: B0579734A

PATIENT
  Sex: Male

DRUGS (1)
  1. KIVEXA [Suspect]

REACTIONS (1)
  - MYOCARDIAL INFARCTION [None]
